FAERS Safety Report 23273251 (Version 1)
Quarter: 2023Q4

REPORT INFORMATION
  Report Type: Spontaneous
  Country: US (occurrence: None)
  Receive Date: 20231207
  Receipt Date: 20231207
  Transmission Date: 20240110
  Serious: No
  Sender: FDA-Public Use
  Company Number: None

PATIENT
  Sex: Female

DRUGS (7)
  1. SILDENAFIL [Suspect]
     Active Substance: SILDENAFIL
     Indication: Pulmonary arterial hypertension
     Route: 048
     Dates: start: 20210430
  2. HYDROXYCHLOROQUINE [Concomitant]
     Active Substance: HYDROXYCHLOROQUINE
  3. LEVOTHYROXIN [Concomitant]
  4. OPSUMIT [Concomitant]
  5. SPIRONOLACT [Concomitant]
  6. TYVASO REFIL SOL 0.6MG/ML [Concomitant]
  7. VENTOLIN HFA AER [Concomitant]

REACTIONS (1)
  - Therapy cessation [None]
